FAERS Safety Report 25443483 (Version 1)
Quarter: 2025Q2

REPORT INFORMATION
  Report Type: Spontaneous
  Country: NL (occurrence: NL)
  Receive Date: 20250617
  Receipt Date: 20250617
  Transmission Date: 20250717
  Serious: Yes (Hospitalization)
  Sender: ACCORD
  Company Number: None

PATIENT
  Age: 75 Year
  Sex: Male
  Weight: 86 kg

DRUGS (15)
  1. FUROSEMIDE [Suspect]
     Active Substance: FUROSEMIDE
     Indication: Diuretic therapy
     Dosage: STRENGTH: 40 MG, 1X PER DAY 1
     Dates: start: 20250407, end: 20250409
  2. DAPAGLIFLOZIN [Suspect]
     Active Substance: DAPAGLIFLOZIN
     Indication: Diuretic therapy
     Dosage: STRENGTH: 10 MG, 1X PER DAY 1 PIECE
     Dates: start: 20250407, end: 20250409
  3. PANTOPRAZOLE [Concomitant]
     Active Substance: PANTOPRAZOLE
  4. ENTOCORT [Concomitant]
     Active Substance: BUDESONIDE
  5. CALCIUM CARBONATE\CHOLECALCIFEROL [Concomitant]
     Active Substance: CALCIUM CARBONATE\CHOLECALCIFEROL
  6. APIXABAN [Concomitant]
     Active Substance: APIXABAN
  7. LANOXIN [Concomitant]
     Active Substance: DIGOXIN
  8. BUMETANIDE [Concomitant]
     Active Substance: BUMETANIDE
  9. METOPROLOL [Concomitant]
     Active Substance: METOPROLOL
  10. SIMVASTATIN [Concomitant]
     Active Substance: SIMVASTATIN
  11. COSMETICS [Concomitant]
     Active Substance: COSMETICS
  12. FUCIDIN [Concomitant]
     Active Substance: FUSIDATE SODIUM
  13. TRIAMCINOLONE ACETONIDE [Concomitant]
     Active Substance: TRIAMCINOLONE ACETONIDE
  14. AZATHIOPRINE [Concomitant]
     Active Substance: AZATHIOPRINE
  15. ALENDRONIC ACID [Concomitant]
     Active Substance: ALENDRONIC ACID

REACTIONS (3)
  - Product substitution issue [Unknown]
  - Dermatitis exfoliative [Unknown]
  - Drug reaction with eosinophilia and systemic symptoms [Unknown]
